FAERS Safety Report 9617007 (Version 9)
Quarter: 2014Q2

REPORT INFORMATION
  Report Type: Report from Study
  Country: IL (occurrence: IL)
  Receive Date: 20131011
  Receipt Date: 20140602
  Transmission Date: 20141212
  Serious: Yes (Life-Threatening, Hospitalization)
  Sender: FDA-Public Use
  Company Number: IL-BAYER-2013-062726

PATIENT
  Age: 66 Year
  Sex: Male
  Weight: 81 kg

DRUGS (9)
  1. RADIUM-223 DICHLORIDE [Suspect]
     Indication: PROSTATE CANCER
     Dosage: 5.055 KBQ, ONCE
     Route: 042
     Dates: start: 20130414, end: 20130414
  2. RADIUM-223 DICHLORIDE [Suspect]
     Indication: PROSTATE CANCER
     Dosage: 4.996 KBQ, ONCE
     Route: 042
     Dates: start: 20130609, end: 20130609
  3. RADIUM-223 DICHLORIDE [Suspect]
     Indication: PROSTATE CANCER
     Dosage: 4.621 KBQ, ONCE
     Route: 042
     Dates: start: 20130707, end: 20130707
  4. RADIUM-223 DICHLORIDE [Suspect]
     Indication: PROSTATE CANCER
     Dosage: 4.581 KBQ, ONCE
     Route: 042
     Dates: start: 20130805, end: 20130805
  5. RADIUM-223 DICHLORIDE [Suspect]
     Indication: PROSTATE CANCER
     Dosage: 4.507 KBQ, ONCE
     Route: 042
     Dates: start: 20130903, end: 20130903
  6. ZOFRAN [Concomitant]
     Indication: NAUSEA
     Dosage: UNK
     Route: 048
     Dates: start: 2000
  7. BONDORMIN [Concomitant]
     Indication: INSOMNIA
     Dosage: UNK
     Route: 048
  8. CARTIA [Concomitant]
     Indication: CEREBROVASCULAR ACCIDENT PROPHYLAXIS
     Dosage: 100 MG DAILY
     Route: 048
     Dates: start: 1998
  9. LANTUS [Concomitant]
     Indication: DIABETES MELLITUS
     Dosage: 30 U/DAY
     Route: 058

REACTIONS (3)
  - Pancytopenia [Recovering/Resolving]
  - Back pain [Recovered/Resolved with Sequelae]
  - Pancytopenia [Recovered/Resolved with Sequelae]
